FAERS Safety Report 5120814-2 (Version None)
Quarter: 2006Q4

REPORT INFORMATION
  Report Type: 
  Country: None (occurrence: None)
  Receive Date: 20061005
  Receipt Date: 20060925
  Transmission Date: 20070319
  Serious: Yes (Hospitalization)
  Sender: FDA-Public Use
  Company Number: US-JNJFOC-20060905969

PATIENT
  Sex: Male
  Weight: 95.26 kg

DRUGS (14)
  1. FENTANYL TRANSDERMAL SYSTEM [Suspect]
     Route: 062
  2. FENTANYL TRANSDERMAL SYSTEM [Suspect]
     Route: 062
  3. FENTANYL TRANSDERMAL SYSTEM [Suspect]
     Route: 062
  4. FENTANYL TRANSDERMAL SYSTEM [Suspect]
     Route: 062
  5. FENTANYL TRANSDERMAL SYSTEM [Suspect]
     Indication: BACK PAIN
     Route: 062
  6. CYMBALTA [Concomitant]
     Indication: NERVOUSNESS
     Route: 048
  7. TOPROL-XL [Concomitant]
     Indication: HYPERTENSION
     Route: 048
  8. CAPTOPRIL [Concomitant]
     Indication: HYPERTENSION
     Route: 048
  9. FLECAINIDE ACETATE [Concomitant]
     Indication: CARDIAC DISORDER
     Route: 048
  10. OXYCODONE HCL [Concomitant]
     Indication: PAIN
     Route: 048
  11. OMEPRAZOLE [Concomitant]
     Indication: GASTROINTESTINAL DISORDER
     Route: 048
  12. TAMSULOSIN HCL [Concomitant]
     Indication: BENIGN PROSTATIC HYPERPLASIA
     Route: 048
  13. METHOCARBAMOL [Concomitant]
     Indication: MUSCLE RELAXANT THERAPY
     Route: 048
  14. UNKNOWN MEDICATION [Concomitant]
     Indication: DRUG USE FOR UNKNOWN INDICATION
     Route: 048

REACTIONS (4)
  - DRUG INEFFECTIVE [None]
  - DYSKINESIA [None]
  - FALL [None]
  - SUBDURAL HAEMATOMA [None]
